FAERS Safety Report 13618434 (Version 1)
Quarter: 2017Q2

REPORT INFORMATION
  Report Type: Spontaneous
  Country: US (occurrence: US)
  Receive Date: 20170606
  Receipt Date: 20170606
  Transmission Date: 20170830
  Serious: No
  Sender: FDA-Public Use
  Company Number: US-ALLERGAN-1673483US

PATIENT
  Sex: Female

DRUGS (6)
  1. ZOLEDRONIC ACID [Suspect]
     Active Substance: ZOLEDRONIC ACID
  2. SULFACETAMIDE UNK [Suspect]
     Active Substance: SULFACETAMIDE
     Indication: PRODUCT USED FOR UNKNOWN INDICATION
     Dosage: UNK
  3. FOSAMAX [Suspect]
     Active Substance: ALENDRONATE SODIUM
  4. ALENDRONIC ACID [Suspect]
     Active Substance: ALENDRONIC ACID
  5. DENOSUMAB [Suspect]
     Active Substance: DENOSUMAB
  6. VARENICLINE [Suspect]
     Active Substance: VARENICLINE

REACTIONS (8)
  - Pharyngeal oedema [Unknown]
  - Myalgia [Unknown]
  - Hypersensitivity [Unknown]
  - Rash [Unknown]
  - Urticaria [Unknown]
  - Bone pain [Unknown]
  - Tongue blistering [Unknown]
  - Drug hypersensitivity [None]
